FAERS Safety Report 15837349 (Version 1)
Quarter: 2019Q1

REPORT INFORMATION
  Report Type: Spontaneous
  Country: US (occurrence: US)
  Receive Date: 20190115
  Receipt Date: 20190115
  Transmission Date: 20190417
  Serious: No
  Sender: FDA-Public Use
  Company Number: None

PATIENT
  Sex: Male
  Weight: 95.25 kg

DRUGS (2)
  1. PREGABALIN. [Suspect]
     Active Substance: PREGABALIN
     Indication: PAIN
     Route: 048
     Dates: start: 20180601, end: 20180604
  2. PREGABALIN. [Suspect]
     Active Substance: PREGABALIN
     Indication: DIABETES MELLITUS
     Route: 048
     Dates: start: 20180601, end: 20180604

REACTIONS (2)
  - Rash [None]
  - Urticaria [None]
